FAERS Safety Report 26059579 (Version 1)
Quarter: 2025Q4

REPORT INFORMATION
  Report Type: Spontaneous
  Country: US (occurrence: None)
  Receive Date: 20251118
  Receipt Date: 20251118
  Transmission Date: 20260118
  Serious: Yes (Death)
  Sender: FDA-CTU
  Company Number: None

PATIENT
  Sex: Male

DRUGS (10)
  1. TACROLIMUS [Suspect]
     Active Substance: TACROLIMUS
     Indication: Renal transplant
     Dosage: TAKE 2 CAPSULES BY MOUTH EVERY 12 (TWELVE) HOURS
     Route: 048
     Dates: start: 20211030
  2. AQUALANCE MIS [Concomitant]
  3. ATORVASTATIN [Concomitant]
     Active Substance: ATORVASTATIN
  4. BD PEN NEEDLE MIS [Concomitant]
  5. BD PEN NEEDLE/NANO/ULTRA [Concomitant]
  6. CALCIUM CARBONATE\ERGOCALCIFEROL\RETINOL [Concomitant]
     Active Substance: CALCIUM CARBONATE\ERGOCALCIFEROL\RETINOL
  7. CARVEDILOL [Concomitant]
     Active Substance: CARVEDILOL
  8. CONTOUR [Concomitant]
  9. CONTOUR NORM LIQ CONTROL [Concomitant]
  10. DEXCOM G6 MIS SENSOR [Concomitant]

REACTIONS (1)
  - Death [None]
